FAERS Safety Report 22281051 (Version 2)
Quarter: 2025Q2

REPORT INFORMATION
  Report Type: Spontaneous
  Country: US (occurrence: US)
  Receive Date: 20230504
  Receipt Date: 20250529
  Transmission Date: 20250716
  Serious: No
  Sender: CIPLA
  Company Number: US-CIPLA LTD.-2023US00854

PATIENT

DRUGS (1)
  1. ALBUTEROL [Suspect]
     Active Substance: ALBUTEROL
     Indication: Respiration abnormal
     Dosage: 0.18 MILLIGRAM (2 PUFFS), QID
     Dates: start: 202301, end: 2023

REACTIONS (3)
  - Dyspnoea [Unknown]
  - Fatigue [Not Recovered/Not Resolved]
  - Device breakage [Unknown]

NARRATIVE: CASE EVENT DATE: 20230101
